FAERS Safety Report 23439237 (Version 1)
Quarter: 2024Q1

REPORT INFORMATION
  Report Type: Spontaneous
  Country: FR (occurrence: FR)
  Receive Date: 20240124
  Receipt Date: 20240124
  Transmission Date: 20240410
  Serious: Yes (Life-Threatening, Hospitalization)
  Sender: FDA-Public Use
  Company Number: None

PATIENT
  Age: 57 Year
  Sex: Male
  Weight: 72 kg

DRUGS (4)
  1. LYRICA [Suspect]
     Active Substance: PREGABALIN
     Indication: Product used for unknown indication
     Dosage: 2100 MILLIGRAM (1 TOTAL)
     Route: 048
     Dates: start: 20230414, end: 20230414
  2. ZOPICLONE [Suspect]
     Active Substance: ZOPICLONE
     Indication: Product used for unknown indication
     Dosage: 80 MILLIGRAM (1 TOTAL)
     Route: 048
     Dates: start: 20230414, end: 20230414
  3. KEPPRA [Suspect]
     Active Substance: LEVETIRACETAM
     Indication: Product used for unknown indication
     Dosage: 10 GRAM (1 TOTAL)
     Route: 048
     Dates: start: 20230414, end: 20230414
  4. VALIUM [Suspect]
     Active Substance: DIAZEPAM
     Indication: Product used for unknown indication
     Dosage: 50 MILLIGRAM (1 TOTAL)
     Route: 048
     Dates: start: 20230414, end: 20230414

REACTIONS (3)
  - Cerebrovascular accident [Recovered/Resolved]
  - Coma [Recovered/Resolved]
  - Toxicity to various agents [Unknown]

NARRATIVE: CASE EVENT DATE: 20230414
